FAERS Safety Report 8605511-0 (Version None)
Quarter: 2012Q3

REPORT INFORMATION
  Report Type: 
  Country: None (occurrence: None)
  Receive Date: 20120820
  Receipt Date: 20120811
  Transmission Date: 20120928
  Serious: Yes (Other)
  Sender: FDA-Public Use
  Company Number: US-ABBOTT-12P-163-0968950-00

PATIENT
  Sex: Female
  Weight: 62.652 kg

DRUGS (5)
  1. LOESTRIN 1.5/30 [Concomitant]
     Indication: PRODUCT USED FOR UNKNOWN INDICATION
  2. SYNTHROID [Suspect]
     Indication: HYPOTHYROIDISM
     Route: 048
     Dates: start: 20110101
  3. EPINEPHRINE [Interacting]
     Indication: PRODUCT USED FOR UNKNOWN INDICATION
     Dates: start: 20100101
  4. SYNTHROID [Interacting]
     Indication: HYPOTHYROIDISM
     Dates: start: 20000101, end: 20110101
  5. SYNTHROID [Suspect]
     Indication: HYPOTHYROIDISM
     Route: 048
     Dates: start: 20110101

REACTIONS (4)
  - COELIAC DISEASE [None]
  - HAEMATOMA [None]
  - DRUG INTERACTION [None]
  - PALPITATIONS [None]
